FAERS Safety Report 7966353-2 (Version None)
Quarter: 2011Q4

REPORT INFORMATION
  Report Type: 
  Country: None (occurrence: None)
  Receive Date: 20111208
  Receipt Date: 20111207
  Transmission Date: 20120403
  Serious: Yes (Life-Threatening, Hospitalization, Other)
  Sender: FDA-Public Use
  Company Number: JP-B.I. PHARMACEUTICALS,INC./RIDGEFIELD-2011-BP-27596NB

PATIENT
  Age: 66 Year
  Sex: Male

DRUGS (7)
  1. PRADAXA [Suspect]
     Dosage: 300 MG
     Route: 048
  2. SELTEPNON [Concomitant]
     Dosage: 50 MG
     Route: 048
  3. DIGOXIN [Concomitant]
     Dosage: 0.0625 MG
     Route: 048
     Dates: start: 20110902
  4. PRADAXA [Suspect]
     Dosage: 220 MG
     Route: 048
     Dates: start: 20111021, end: 20111112
  5. PERINDOPRIL ERBUMINE [Concomitant]
     Dosage: 2 MG
     Route: 048
     Dates: start: 20110902
  6. RUEFRIEN [Concomitant]
     Dosage: 0.5 G
     Route: 048
  7. TORSEMIDE [Concomitant]
     Dosage: 6 MG
     Route: 048
     Dates: start: 20110902

REACTIONS (3)
  - CARDIAC FAILURE [None]
  - LOWER GASTROINTESTINAL HAEMORRHAGE [None]
  - SHOCK HAEMORRHAGIC [None]
